FAERS Safety Report 16322777 (Version 5)
Quarter: 2025Q3

REPORT INFORMATION
  Report Type: Report from Study
  Country: US (occurrence: US)
  Receive Date: 20190516
  Receipt Date: 20250704
  Transmission Date: 20251021
  Serious: No
  Sender: KYOWA
  Company Number: US-KYOWAKIRIN-2019BKK001056

PATIENT

DRUGS (11)
  1. BUROSUMAB [Suspect]
     Active Substance: BUROSUMAB
     Indication: Hereditary hypophosphataemic rickets
     Route: 058
     Dates: start: 20181005
  2. BUROSUMAB [Suspect]
     Active Substance: BUROSUMAB
     Route: 058
     Dates: start: 20190118, end: 2019
  3. BUROSUMAB [Suspect]
     Active Substance: BUROSUMAB
     Route: 058
     Dates: start: 20190201
  4. BUROSUMAB [Suspect]
     Active Substance: BUROSUMAB
     Route: 058
  5. BUROSUMAB [Suspect]
     Active Substance: BUROSUMAB
     Indication: Hereditary hypophosphataemic rickets
     Dosage: 90 MG (2 INJECTIONS STRENGHT 10 AND 30 MG),EVERY TWO WEEKS
     Route: 058
  6. BUROSUMAB [Suspect]
     Active Substance: BUROSUMAB
     Indication: Hereditary hypophosphataemic rickets
     Dosage: 90 MG (2 INJECTIONS STRENGHT 10 AND 30 MG),EVERY TWO WEEKS
     Route: 058
  7. BUROSUMAB [Suspect]
     Active Substance: BUROSUMAB
     Dosage: 90 MG, EVERY 14 DAYS
     Route: 058
     Dates: start: 20181207
  8. RITALIN [Concomitant]
     Active Substance: METHYLPHENIDATE HYDROCHLORIDE
     Indication: Product used for unknown indication
     Route: 065
  9. LEXAPRO [Concomitant]
     Active Substance: ESCITALOPRAM OXALATE
     Indication: Product used for unknown indication
     Route: 065
  10. MELATONIN [Concomitant]
     Active Substance: MELATONIN
     Indication: Product used for unknown indication
     Route: 065
  11. MIRALAX [Concomitant]
     Active Substance: POLYETHYLENE GLYCOL 3350
     Indication: Product used for unknown indication
     Route: 065

REACTIONS (3)
  - Blood phosphorus decreased [Not Recovered/Not Resolved]
  - Injection site pain [Unknown]
  - Product dose omission issue [Unknown]
